FAERS Safety Report 4754828-9 (Version None)
Quarter: 2005Q3

REPORT INFORMATION
  Report Type: 
  Country: None (occurrence: None)
  Receive Date: 20050826
  Receipt Date: 20050826
  Transmission Date: 20060218
  Serious: Yes (Hospitalization)
  Sender: FDA-Public Use
  Company Number: None

PATIENT
  Age: 41 Year
  Sex: Female

DRUGS (1)
  1. PAROXETINE-CAPSULE-20 MG [Suspect]
     Indication: MAJOR DEPRESSION
     Dosage: 20 M QD -ORAL
     Route: 048
     Dates: start: 20050621

REACTIONS (21)
  - ANHEDONIA [None]
  - BLOOD CREATININE INCREASED [None]
  - CONVULSION [None]
  - CRYING [None]
  - DEPRESSED MOOD [None]
  - DISEASE RECURRENCE [None]
  - DISTURBANCE IN ATTENTION [None]
  - ECONOMIC PROBLEM [None]
  - FALL [None]
  - FEELING OF DESPAIR [None]
  - FLAT AFFECT [None]
  - HEAD INJURY [None]
  - IMPAIRED DRIVING ABILITY [None]
  - INSOMNIA [None]
  - LOSS OF CONSCIOUSNESS [None]
  - MAJOR DEPRESSION [None]
  - SINUS BRADYCARDIA [None]
  - SOCIAL AVOIDANT BEHAVIOUR [None]
  - STRESS [None]
  - STRESS AT WORK [None]
  - SUICIDAL IDEATION [None]
